FAERS Safety Report 5944222-7 (Version None)
Quarter: 2008Q4

REPORT INFORMATION
  Report Type: 
  Country: None (occurrence: None)
  Receive Date: 20081104
  Receipt Date: 20081020
  Transmission Date: 20090506
  Serious: Yes (Death)
  Sender: FDA-Public Use
  Company Number: 2008002738

PATIENT
  Age: 71 Year
  Sex: Female
  Weight: 63.4 kg

DRUGS (5)
  1. ERLOTINIB (ERLOTINIB) (TABLET) (ERLOTINIB) [Suspect]
     Dosage: (150 MG, QD), ORAL
     Route: 048
     Dates: start: 20071010
  2. BEVACIZUMAB (INJECTION FOR INFUSION) [Suspect]
     Dosage: (985, Q3W), INTRAVENOUS
     Route: 042
     Dates: start: 20070718
  3. ZOCOR [Concomitant]
  4. DOXYCYCLINE [Concomitant]
  5. OXYGEN (OXYGEN) [Concomitant]

REACTIONS (10)
  - BACK PAIN [None]
  - BONE PAIN [None]
  - CARDIO-RESPIRATORY ARREST [None]
  - EPISTAXIS [None]
  - HAEMATOCRIT DECREASED [None]
  - HAEMOGLOBIN DECREASED [None]
  - MUSCULOSKELETAL PAIN [None]
  - RESPIRATORY TRACT HAEMORRHAGE [None]
  - UNRESPONSIVE TO STIMULI [None]
  - UPPER RESPIRATORY TRACT CONGESTION [None]
